FAERS Safety Report 17186209 (Version 2)
Quarter: 2020Q1

REPORT INFORMATION
  Report Type: Spontaneous
  Country: DE (occurrence: DE)
  Receive Date: 20191220
  Receipt Date: 20200110
  Transmission Date: 20200409
  Serious: Yes (Hospitalization)
  Sender: FDA-Public Use
  Company Number: DE-TEVA-2019-DE-1156683

PATIENT
  Age: 41 Year
  Sex: Male

DRUGS (6)
  1. ARTEMETHER/LUMEFANTRIN [Concomitant]
     Indication: MALARIA
     Dosage: 6 DOSES
     Route: 065
  2. NORADRENALINE [Suspect]
     Active Substance: NOREPINEPHRINE
     Indication: RESPIRATORY FATIGUE
     Route: 065
  3. CEFTRIAXONE. [Concomitant]
     Active Substance: CEFTRIAXONE
     Indication: PRODUCT USED FOR UNKNOWN INDICATION
     Route: 065
  4. DOXYCYCLINE. [Suspect]
     Active Substance: DOXYCYCLINE
     Indication: MALARIA
  5. ARTESUNATE [Suspect]
     Active Substance: ARTESUNATE
     Indication: MALARIA
     Route: 042
  6. DOXYCYCLINE. [Suspect]
     Active Substance: DOXYCYCLINE
     Indication: MALARIA PROPHYLAXIS
     Route: 065

REACTIONS (3)
  - Staphylococcal infection [Unknown]
  - Peripheral vascular disorder [Recovered/Resolved]
  - Haemolytic anaemia [Unknown]
